FAERS Safety Report 15482599 (Version 1)
Quarter: 2018Q4

REPORT INFORMATION
  Report Type: Spontaneous
  Country: US (occurrence: US)
  Receive Date: 20181010
  Receipt Date: 20181010
  Transmission Date: 20190205
  Serious: Yes (Hospitalization)
  Sender: FDA-Public Use
  Company Number: US-ORPHAN EUROPE-2055892

PATIENT
  Age: 61 Year
  Sex: Female

DRUGS (4)
  1. LOSARTAN. [Concomitant]
     Active Substance: LOSARTAN
  2. CYSTADANE [Suspect]
     Active Substance: BETAINE
     Indication: PRODUCT USED FOR UNKNOWN INDICATION
     Route: 048
     Dates: end: 20180907
  3. HYDROCHLOROTHIAZIDE. [Concomitant]
     Active Substance: HYDROCHLOROTHIAZIDE
  4. CYSTADANE [Suspect]
     Active Substance: BETAINE
     Route: 048
     Dates: start: 20180908

REACTIONS (2)
  - Product dose omission [Recovered/Resolved]
  - Hysterectomy [Recovering/Resolving]

NARRATIVE: CASE EVENT DATE: 20180907
